FAERS Safety Report 24391541 (Version 1)
Quarter: 2024Q4

REPORT INFORMATION
  Report Type: Spontaneous
  Country: US (occurrence: None)
  Receive Date: 20241002
  Receipt Date: 20241002
  Transmission Date: 20250115
  Serious: Yes (Disabling)
  Sender: Public
  Company Number: None

PATIENT
  Age: 50 Year
  Sex: Female
  Weight: 72 kg

DRUGS (11)
  1. CAPLYTA [Suspect]
     Active Substance: LUMATEPERONE
     Indication: Bipolar disorder
     Dosage: OTHER QUANTITY : 1 CAPSULE(S);?FREQUENCY : DAILY;?
     Route: 048
     Dates: start: 20220208, end: 20231003
  2. AUSTEDO [Concomitant]
     Active Substance: DEUTETRABENAZINE
  3. LEVOTHYROXINE [Concomitant]
     Active Substance: LEVOTHYROXINE
  4. SERTRALINE HYDROCHLORIDE [Concomitant]
     Active Substance: SERTRALINE HYDROCHLORIDE
  5. GABAPENTIN [Concomitant]
     Active Substance: GABAPENTIN
  6. CLONAZEPAM [Concomitant]
     Active Substance: CLONAZEPAM
  7. PROGESTERONE [Concomitant]
     Active Substance: PROGESTERONE
  8. ESTRADIOL TRANSDERMAL SYSTEM [Concomitant]
     Active Substance: ESTRADIOL
  9. LIDOCAINE PATCH [Concomitant]
     Active Substance: LIDOCAINE
  10. IBUPROFEN [Concomitant]
     Active Substance: IBUPROFEN
  11. ACETAMINOPHEN [Concomitant]
     Active Substance: ACETAMINOPHEN

REACTIONS (12)
  - Torticollis [None]
  - Facial spasm [None]
  - Myoclonus [None]
  - Withdrawal syndrome [None]
  - Insomnia [None]
  - Tremor [None]
  - Hyperhidrosis [None]
  - Seizure [None]
  - Tardive dyskinesia [None]
  - Neuralgia [None]
  - Cervical radiculopathy [None]
  - Loss of personal independence in daily activities [None]

NARRATIVE: CASE EVENT DATE: 20230412
